FAERS Safety Report 20971360 (Version 13)
Quarter: 2024Q3

REPORT INFORMATION
  Report Type: Spontaneous
  Country: CA (occurrence: CA)
  Receive Date: 20220616
  Receipt Date: 20240926
  Transmission Date: 20241017
  Serious: Yes (Other)
  Sender: CELLTRION
  Company Number: CA-CELLTRION INC.-2020CA023417

PATIENT

DRUGS (19)
  1. INFLECTRA [Suspect]
     Active Substance: INFLIXIMAB-DYYB
     Indication: Colitis ulcerative
     Dosage: 800 MG, EVERY 8 WEEKS
     Route: 042
     Dates: start: 20200408
  2. INFLECTRA [Suspect]
     Active Substance: INFLIXIMAB-DYYB
     Dosage: 800 MG, EVERY 8 WEEKS
     Route: 042
     Dates: start: 20200408
  3. INFLECTRA [Suspect]
     Active Substance: INFLIXIMAB-DYYB
     Dosage: 800 MG, EVERY 8 WEEKS
     Route: 042
     Dates: start: 20200612, end: 20200612
  4. INFLECTRA [Suspect]
     Active Substance: INFLIXIMAB-DYYB
     Dosage: 800 MG, EVERY 8 WEEKS
     Route: 042
     Dates: start: 20200612, end: 20200612
  5. INFLECTRA [Suspect]
     Active Substance: INFLIXIMAB-DYYB
     Dosage: 800 MG, EVERY 8 WEEKS
     Route: 042
     Dates: start: 20200814
  6. INFLECTRA [Suspect]
     Active Substance: INFLIXIMAB-DYYB
     Dosage: 800 MG, EVERY 8 WEEKS
     Route: 042
     Dates: start: 20210326
  7. INFLECTRA [Suspect]
     Active Substance: INFLIXIMAB-DYYB
     Dosage: 800 MG, EVERY 8 WEEKS
     Route: 042
     Dates: start: 20210521
  8. INFLECTRA [Suspect]
     Active Substance: INFLIXIMAB-DYYB
     Dosage: 800 MG, EVERY 8 WEEKS
     Route: 042
     Dates: start: 20210713
  9. INFLECTRA [Suspect]
     Active Substance: INFLIXIMAB-DYYB
     Dosage: 800 MG, AFTER 10 WEEKS (PRESCRIBED EVERY 8 WEEKS)
     Route: 042
     Dates: start: 20210921
  10. INFLECTRA [Suspect]
     Active Substance: INFLIXIMAB-DYYB
     Dosage: 800 MG, EVERY 8 WEEKS
     Route: 042
     Dates: start: 20211119
  11. INFLECTRA [Suspect]
     Active Substance: INFLIXIMAB-DYYB
     Dosage: 800 MG, AFTER 11 WEEKS AND 6 DAYS (PRESCRIBED EVERY 8 WEEKS)
     Route: 042
     Dates: start: 20220210
  12. INFLECTRA [Suspect]
     Active Substance: INFLIXIMAB-DYYB
     Dosage: 800 MG, EVERY 8 WEEKS
     Route: 042
     Dates: start: 20220603
  13. INFLECTRA [Suspect]
     Active Substance: INFLIXIMAB-DYYB
     Dosage: 800 MG, EVERY 8 WEEKS
     Route: 042
     Dates: start: 20220603
  14. INFLECTRA [Suspect]
     Active Substance: INFLIXIMAB-DYYB
     Dosage: 800 MG, AFTER 10 WEEKS AND 3 DAYS (PRESCRIBED EVERY 8 WEEKS)
     Route: 042
     Dates: start: 20220815
  15. INFLECTRA [Suspect]
     Active Substance: INFLIXIMAB-DYYB
     Dosage: 800 MG, AFTER 18 WEEKS AND 5 DAYS (PRESCRIBED EVERY 8 WEEKS)
     Route: 042
     Dates: start: 20221224
  16. INFLECTRA [Suspect]
     Active Substance: INFLIXIMAB-DYYB
     Dosage: 800 MG, EVERY 8 WEEKS
     Route: 042
     Dates: start: 20230218
  17. INFLECTRA [Suspect]
     Active Substance: INFLIXIMAB-DYYB
     Dosage: 800 MG, AFTER 16 WEEKS (PRESCRIBED INFUSIONS EVERY 8 WEEKS)
     Route: 042
     Dates: start: 20230610
  18. INFLECTRA [Suspect]
     Active Substance: INFLIXIMAB-DYYB
     Dosage: 800 MG, EVERY 8 WEEKS
     Route: 042
     Dates: start: 20230805
  19. INFLECTRA [Suspect]
     Active Substance: INFLIXIMAB-DYYB
     Dosage: 700 MG, WEEK 6 DOSE
     Route: 042
     Dates: start: 20240911, end: 20240911

REACTIONS (12)
  - Foot operation [Unknown]
  - Condition aggravated [Recovered/Resolved]
  - Blood pressure systolic increased [Recovered/Resolved]
  - Weight increased [Unknown]
  - COVID-19 [Recovered/Resolved]
  - COVID-19 [Unknown]
  - Animal scratch [Unknown]
  - Off label use [Unknown]
  - Off label use [Unknown]
  - Off label use [Unknown]
  - Intentional product use issue [Unknown]
  - Inappropriate schedule of product administration [Unknown]

NARRATIVE: CASE EVENT DATE: 20200612
